FAERS Safety Report 12991064 (Version 1)
Quarter: 2016Q4

REPORT INFORMATION
  Report Type: Spontaneous
  Country: FR (occurrence: FR)
  Receive Date: 20161201
  Receipt Date: 20161201
  Transmission Date: 20170207
  Serious: Yes (Other)
  Sender: FDA-Public Use
  Company Number: FR-TEVA-713978ROM

PATIENT
  Age: 38 Year
  Sex: Female

DRUGS (1)
  1. COPAXONE [Suspect]
     Active Substance: GLATIRAMER ACETATE
     Indication: MULTIPLE SCLEROSIS
     Dosage: 1 DOSAGE FORMS DAILY; COPAXONE: 20 MG/ML
     Route: 058
     Dates: start: 200907

REACTIONS (2)
  - Teeth brittle [Not Recovered/Not Resolved]
  - Enamel anomaly [Not Recovered/Not Resolved]

NARRATIVE: CASE EVENT DATE: 201507
